FAERS Safety Report 11566282 (Version 1)
Quarter: 2015Q3

REPORT INFORMATION
  Report Type: Spontaneous
  Country: US (occurrence: US)
  Receive Date: 20150916
  Receipt Date: 20150916
  Transmission Date: 20151125
  Serious: No
  Sender: FDA-Public Use
  Company Number: US-ELI_LILLY_AND_COMPANY-US200906000108

PATIENT
  Age: 73 Year
  Sex: Female

DRUGS (1)
  1. FORTEO [Suspect]
     Active Substance: TERIPARATIDE
     Dosage: 20 UG, DAILY (1/D)
     Dates: start: 200811

REACTIONS (5)
  - Dyspnoea [Unknown]
  - Nausea [Recovered/Resolved]
  - Fatigue [Unknown]
  - Nausea [Unknown]
  - Fibromyalgia [Unknown]

NARRATIVE: CASE EVENT DATE: 200811
